FAERS Safety Report 5596664-X (Version None)
Quarter: 2008Q1

REPORT INFORMATION
  Report Type: 
  Country: None (occurrence: None)
  Receive Date: 20080118
  Receipt Date: 20080107
  Transmission Date: 20080703
  Serious: Yes (Hospitalization, Other)
  Sender: FDA-Public Use
  Company Number: BR-PFIZER INC-2008000475

PATIENT
  Sex: Male
  Weight: 71 kg

DRUGS (4)
  1. CHANTIX [Suspect]
     Indication: SMOKING CESSATION THERAPY
     Route: 048
     Dates: start: 20071108, end: 20071227
  2. RAMIPRIL/HYDROCHLOROTHIAZIDE [Concomitant]
  3. CARVEDILOL [Concomitant]
  4. FRONTAL [Concomitant]

REACTIONS (7)
  - ABDOMINAL PAIN [None]
  - ALANINE AMINOTRANSFERASE ABNORMAL [None]
  - APPENDICITIS [None]
  - ASPARTATE AMINOTRANSFERASE ABNORMAL [None]
  - GAMMA-GLUTAMYLTRANSFERASE INCREASED [None]
  - NAUSEA [None]
  - STRESS [None]
